FAERS Safety Report 6349792-5 (Version None)
Quarter: 2009Q3

REPORT INFORMATION
  Report Type: 
  Country: None (occurrence: None)
  Receive Date: 20090911
  Receipt Date: 20090908
  Transmission Date: 20100115
  Serious: Yes (Life-Threatening)
  Sender: FDA-Public Use
  Company Number: US-SANOFI-SYNTHELABO-F01200900872

PATIENT
  Sex: Male

DRUGS (8)
  1. CAPECITABINE [Suspect]
     Indication: OESOPHAGEAL ADENOCARCINOMA
     Dosage: 20 DAYS, M-F 625 MG/M2
     Route: 048
     Dates: start: 20090129, end: 20090309
  2. VYTORIN [Concomitant]
     Dosage: UNK
     Route: 065
  3. VITAMIN D [Concomitant]
     Dosage: UNK
     Route: 065
  4. OMEPRAZOLE [Concomitant]
     Dosage: UNK
     Route: 065
  5. GLUTATHIONE [Concomitant]
     Dosage: UNK
     Route: 065
  6. ASPIRIN [Concomitant]
     Dosage: UNK
     Route: 065
  7. AMLODIPINE [Concomitant]
     Dosage: UNK
     Route: 065
  8. OXALIPLATIN [Suspect]
     Indication: OESOPHAGEAL ADENOCARCINOMA
     Dosage: D1, D15, D29 185 MG/M2
     Route: 041
     Dates: start: 20090226, end: 20090226

REACTIONS (1)
  - ACUTE MYELOID LEUKAEMIA [None]
